FAERS Safety Report 8477354-2 (Version None)
Quarter: 2012Q2

REPORT INFORMATION
  Report Type: 
  Country: None (occurrence: None)
  Receive Date: 20120620
  Receipt Date: 20120606
  Transmission Date: 20120825
  Serious: Yes (Hospitalization)
  Sender: FDA-Public Use
  Company Number: ACO_30554_2012

PATIENT
  Age: 47 Year
  Sex: Male

DRUGS (2)
  1. COPAXONE [Concomitant]
  2. AMPYRA [Suspect]
     Indication: PRODUCT USED FOR UNKNOWN INDICATION
     Dosage: 10 MG, BID, ORAL
     Route: 048
     Dates: start: 20110902

REACTIONS (4)
  - CONVULSION [None]
  - RETCHING [None]
  - BLOOD URINE PRESENT [None]
  - HAEMATOSPERMIA [None]
